FAERS Safety Report 12991181 (Version 1)
Quarter: 2016Q4

REPORT INFORMATION
  Report Type: Spontaneous
  Country: US (occurrence: US)
  Receive Date: 20161130
  Receipt Date: 20161130
  Transmission Date: 20170207
  Serious: Yes (Other)
  Sender: FDA-Public Use
  Company Number: None

PATIENT
  Age: 65 Year
  Sex: Female
  Weight: 64.8 kg

DRUGS (7)
  1. DORZALAMIDE HCL-TIMOLOL [Concomitant]
  2. TRINTELLIX [Concomitant]
     Active Substance: VORTIOXETINE HYDROBROMIDE
  3. CLONAZEPAM. [Suspect]
     Active Substance: CLONAZEPAM
     Indication: ANXIETY
     Dosage: ?          QUANTITY:180 TABLET(S);?
     Route: 048
     Dates: start: 20160930, end: 20161104
  4. OSCAL [Concomitant]
     Active Substance: CALCIUM CARBONATE
  5. BUPROPRION [Concomitant]
     Active Substance: BUPROPION
  6. CENTRUM [Concomitant]
     Active Substance: VITAMINS
  7. TRAVATAN [Concomitant]
     Active Substance: TRAVOPROST

REACTIONS (4)
  - Diarrhoea [None]
  - Product quality issue [None]
  - Anxiety [None]
  - Nausea [None]

NARRATIVE: CASE EVENT DATE: 20160930
